FAERS Safety Report 15387970 (Version 1)
Quarter: 2018Q4

REPORT INFORMATION
  Report Type: Spontaneous
  Country: ES (occurrence: ES)
  Receive Date: 20180915
  Receipt Date: 20180915
  Transmission Date: 20190204
  Serious: Yes (Death, Life-Threatening, Other)
  Sender: FDA-Public Use
  Company Number: ES-AUROBINDO-AUR-APL-2018-045403

PATIENT
  Age: 76 Year
  Sex: Female

DRUGS (4)
  1. DIURET /00011801/ [Suspect]
     Active Substance: CHLOROTHIAZIDE
     Indication: CARDIAC FAILURE ACUTE
     Dosage: UNK
     Route: 042
     Dates: start: 20180807
  2. CEFTRIAXONE. [Suspect]
     Active Substance: CEFTRIAXONE
     Indication: SEPSIS
     Dosage: UNK
     Route: 042
     Dates: start: 20180807, end: 20180808
  3. LEVOFLOXACIN. [Suspect]
     Active Substance: LEVOFLOXACIN
     Indication: SEPSIS
     Dosage: UNK
     Route: 042
     Dates: start: 20180807, end: 20180808
  4. MORPHINE [Suspect]
     Active Substance: MORPHINE
     Indication: ACUTE PULMONARY OEDEMA
     Dosage: 20 MILLIGRAM, DAILY (10 MG PUNTUALES EN 2 OCASIONES  A LO LARGO DEL D?A 07/08/2018)
     Route: 042
     Dates: start: 20180807, end: 20180807

REACTIONS (3)
  - Acute kidney injury [Fatal]
  - Respiratory failure [Fatal]
  - Encephalopathy [Fatal]

NARRATIVE: CASE EVENT DATE: 20180808
